FAERS Safety Report 7827358-5 (Version None)
Quarter: 2011Q4

REPORT INFORMATION
  Report Type: 
  Country: None (occurrence: None)
  Receive Date: 20111020
  Receipt Date: 20110804
  Transmission Date: 20120403
  Serious: Yes (Other)
  Sender: FDA-Public Use
  Company Number: JP-BRISTOL-MYERS SQUIBB COMPANY-16158735

PATIENT
  Age: 53 Year
  Sex: Male

DRUGS (5)
  1. BEZAFIBRATE [Concomitant]
     Route: 048
  2. ALLOPURINOL [Concomitant]
     Route: 048
  3. METFORMIN HCL [Suspect]
     Indication: DIABETES MELLITUS
     Route: 048
  4. AMLODIPINE [Concomitant]
     Route: 048
  5. BISOPROLOL FUMARATE [Concomitant]
     Dosage: MAIN HEART
     Route: 048

REACTIONS (1)
  - URINARY RETENTION [None]
